FAERS Safety Report 6580413-2 (Version None)
Quarter: 2010Q1

REPORT INFORMATION
  Report Type: 
  Country: None (occurrence: None)
  Receive Date: 20100212
  Receipt Date: 20100204
  Transmission Date: 20100710
  Serious: Yes (Other)
  Sender: FDA-Public Use
  Company Number: PHHY2010CA06452

PATIENT
  Sex: Male

DRUGS (2)
  1. RASILEZ [Suspect]
     Route: 065
  2. POTASSIUM [Concomitant]
     Route: 065

REACTIONS (4)
  - BACK PAIN [None]
  - MUSCULOSKELETAL PAIN [None]
  - MYALGIA [None]
  - SLEEP DISORDER [None]
